FAERS Safety Report 19982653 (Version 2)
Quarter: 2021Q4

REPORT INFORMATION
  Report Type: Spontaneous
  Country: CN (occurrence: CN)
  Receive Date: 20211021
  Receipt Date: 20211025
  Transmission Date: 20220303
  Serious: Yes (Death, Hospitalization)
  Sender: FDA-Public Use
  Company Number: 2021A780755

PATIENT
  Age: 72 Year
  Sex: Male
  Weight: 69 kg

DRUGS (1)
  1. IMFINZI [Suspect]
     Active Substance: DURVALUMAB
     Indication: Non-small cell lung cancer
     Dosage: 620MG / CYCLE620.0MG EVERY CYCLE
     Route: 042
     Dates: start: 20210507, end: 20210528

REACTIONS (7)
  - Cough [Fatal]
  - Epistaxis [Fatal]
  - Eye haemorrhage [Fatal]
  - Mouth haemorrhage [Fatal]
  - Cardiac discomfort [Unknown]
  - Dyspnoea [Unknown]
  - General physical health deterioration [Unknown]
